FAERS Safety Report 6596872-5 (Version None)
Quarter: 2010Q1

REPORT INFORMATION
  Report Type: 
  Country: None (occurrence: None)
  Receive Date: 20100222
  Receipt Date: 20100222
  Transmission Date: 20100710
  Serious: No
  Sender: FDA-Public Use
  Company Number: None

PATIENT
  Age: 71 Year
  Sex: Female
  Weight: 88.4514 kg

DRUGS (1)
  1. RANITIDINE [Suspect]
     Indication: IRRITABLE BOWEL SYNDROME
     Dosage: ONE -1- EVERY NIGHT
     Dates: start: 20091223, end: 20100201

REACTIONS (2)
  - DYSPEPSIA [None]
  - HEADACHE [None]
